FAERS Safety Report 9304840 (Version 1)
Quarter: 2013Q2

REPORT INFORMATION
  Report Type: Spontaneous
  Country: PT (occurrence: None)
  Receive Date: 20130521
  Receipt Date: 20130521
  Transmission Date: 20140414
  Serious: Yes (Other)
  Sender: FDA-Public Use
  Company Number: PT-ALKEM-000084

PATIENT
  Age: 57 Year
  Sex: Male

DRUGS (2)
  1. MYCOPHENOLATE MOFETIL [Suspect]
     Indication: IMMUNOSUPPRESSION
  2. TACROLIMUS (TACROLIMUS) [Suspect]
     Indication: IMMUNOSUPPRESSION

REACTIONS (4)
  - Inflammatory bowel disease [None]
  - Colitis ulcerative [None]
  - Colitis ulcerative [None]
  - Diarrhoea haemorrhagic [None]
